FAERS Safety Report 17927986 (Version 1)
Quarter: 2020Q2

REPORT INFORMATION
  Report Type: Spontaneous
  Country: US (occurrence: US)
  Receive Date: 20200623
  Receipt Date: 20200623
  Transmission Date: 20200714
  Serious: No
  Sender: FDA-Public Use
  Company Number: US-DRREDDYS-USA/USA/20/0124104

PATIENT
  Age: 68 Year
  Sex: Male
  Weight: 78.75 kg

DRUGS (1)
  1. NUPERCAINAL [Suspect]
     Active Substance: DIBUCAINE
     Indication: HAEMORRHOIDS
     Route: 061
     Dates: start: 202005

REACTIONS (3)
  - Product quality issue [Unknown]
  - Expired product administered [Unknown]
  - Drug ineffective [Unknown]
